FAERS Safety Report 25413003 (Version 1)
Quarter: 2025Q2

REPORT INFORMATION
  Report Type: Spontaneous
  Country: US (occurrence: None)
  Receive Date: 20250606
  Receipt Date: 20250606
  Transmission Date: 20250716
  Serious: Yes (Life-Threatening, Hospitalization)
  Sender: FDA-CTU
  Company Number: None

PATIENT
  Age: 67 Year
  Sex: Male
  Weight: 114.3 kg

DRUGS (1)
  1. REMICADE [Suspect]
     Active Substance: INFLIXIMAB
     Indication: Crohn^s disease
     Route: 042
     Dates: start: 20250605, end: 20250605

REACTIONS (6)
  - Infusion related reaction [None]
  - Tachypnoea [None]
  - Tachycardia [None]
  - Tremor [None]
  - Stridor [None]
  - Oxygen saturation decreased [None]

NARRATIVE: CASE EVENT DATE: 20250605
